FAERS Safety Report 11690909 (Version 3)
Quarter: 2015Q4

REPORT INFORMATION
  Report Type: Spontaneous
  Country: ES (occurrence: ES)
  Receive Date: 20151102
  Receipt Date: 20151120
  Transmission Date: 20160304
  Serious: Yes (Death)
  Sender: FDA-Public Use
  Company Number: ES-BRACCO-001318

PATIENT
  Age: 63 Year
  Sex: Female
  Weight: 92 kg

DRUGS (5)
  1. TORASEMIDE [Concomitant]
     Active Substance: TORSEMIDE
  2. LISINOPRIL. [Concomitant]
     Active Substance: LISINOPRIL
  3. ATENOLOL. [Concomitant]
     Active Substance: ATENOLOL
  4. ROSUVASTATIN [Concomitant]
     Active Substance: ROSUVASTATIN
  5. MULTIHANCE [Suspect]
     Active Substance: GADOBENATE DIMEGLUMINE
     Indication: NUCLEAR MAGNETIC RESONANCE IMAGING HEART
     Route: 042
     Dates: start: 20151009, end: 20151009

REACTIONS (1)
  - Anaphylactic shock [Fatal]

NARRATIVE: CASE EVENT DATE: 20151009
